FAERS Safety Report 18925569 (Version 3)
Quarter: 2021Q2

REPORT INFORMATION
  Report Type: Report from Study
  Country: US (occurrence: US)
  Receive Date: 20210222
  Receipt Date: 20210525
  Transmission Date: 20210717
  Serious: Yes (Hospitalization, Other)
  Sender: FDA-Public Use
  Company Number: US-SEATTLE GENETICS-2021SGN00108

PATIENT
  Sex: Female

DRUGS (2)
  1. CAPECITABINE. [Suspect]
     Active Substance: CAPECITABINE
  2. TUCATINIB [Suspect]
     Active Substance: TUCATINIB
     Indication: BREAST CANCER FEMALE
     Dosage: UNK
     Route: 048

REACTIONS (9)
  - Musculoskeletal disorder [Unknown]
  - Faeces discoloured [Unknown]
  - Central nervous system lesion [Unknown]
  - Seizure [Unknown]
  - Somnolence [Unknown]
  - Brain oedema [Unknown]
  - Wheezing [Unknown]
  - Hypotonia [Unknown]
  - Dysarthria [Unknown]
